FAERS Safety Report 20958185 (Version 1)
Quarter: 2022Q2

REPORT INFORMATION
  Report Type: Spontaneous
  Country: PT (occurrence: RU)
  Receive Date: 20220614
  Receipt Date: 20220614
  Transmission Date: 20220721
  Serious: Yes (Other)
  Sender: FDA-Public Use
  Company Number: RU-BIAL-BIAL-10473

PATIENT
  Sex: Female

DRUGS (1)
  1. ESLICARBAZEPINE ACETATE [Suspect]
     Active Substance: ESLICARBAZEPINE ACETATE
     Indication: Epilepsy
     Dosage: 1200 MG, QD
     Route: 048

REACTIONS (4)
  - Pancreatitis [Unknown]
  - Fatigue [Unknown]
  - Enamel anomaly [Unknown]
  - Dyspnoea [Unknown]
